FAERS Safety Report 20418001 (Version 3)
Quarter: 2022Q1

REPORT INFORMATION
  Report Type: Report from Study
  Country: BR (occurrence: None)
  Receive Date: 20220202
  Receipt Date: 20220210
  Transmission Date: 20220423
  Serious: Yes (Hospitalization)
  Sender: FDA-Public Use
  Company Number: BR-Eisai Medical Research-EC-2022-107778

PATIENT
  Age: 68 Year
  Sex: Female
  Weight: 82.15 kg

DRUGS (12)
  1. LENVATINIB [Suspect]
     Active Substance: LENVATINIB
     Indication: Endometrial cancer
     Route: 048
     Dates: start: 20201001, end: 20201221
  2. LENVATINIB [Suspect]
     Active Substance: LENVATINIB
     Dosage: STARTING DOSE AT 14 MG, FLUCTUATED DOSAGE
     Route: 048
     Dates: start: 20201222
  3. PEMBROLIZUMAB [Suspect]
     Active Substance: PEMBROLIZUMAB
     Indication: Endometrial cancer
     Route: 041
     Dates: start: 20201001, end: 20201112
  4. PEMBROLIZUMAB [Suspect]
     Active Substance: PEMBROLIZUMAB
     Route: 041
     Dates: start: 20201203, end: 20201203
  5. PEMBROLIZUMAB [Suspect]
     Active Substance: PEMBROLIZUMAB
     Route: 041
     Dates: start: 20201222
  6. METFORMIN [Concomitant]
     Active Substance: METFORMIN HYDROCHLORIDE
     Dates: start: 20050901
  7. MIRABEGRON [Concomitant]
     Active Substance: MIRABEGRON
     Dates: start: 20200122
  8. GLICLAZIDE [Concomitant]
     Active Substance: GLICLAZIDE
     Dates: start: 20200301
  9. ALOGLIPTIN [Concomitant]
     Active Substance: ALOGLIPTIN
     Dates: start: 20200301
  10. PREGABALIN [Concomitant]
     Active Substance: PREGABALIN
     Dates: start: 20200929
  11. SODIUM BICARBONATE [Concomitant]
     Active Substance: SODIUM BICARBONATE
     Dates: start: 20201027
  12. LEVOTHYROXINE [Concomitant]
     Active Substance: LEVOTHYROXINE
     Dates: start: 19900901, end: 20210609

REACTIONS (1)
  - Hypertension [Not Recovered/Not Resolved]

NARRATIVE: CASE EVENT DATE: 20201203
